FAERS Safety Report 25484625 (Version 1)
Quarter: 2025Q2

REPORT INFORMATION
  Report Type: Spontaneous
  Country: US (occurrence: None)
  Receive Date: 20250626
  Receipt Date: 20250626
  Transmission Date: 20250716
  Serious: Yes (Hospitalization)
  Sender: FDA-CTU
  Company Number: None

PATIENT
  Age: 67 Year
  Sex: Female
  Weight: 67.1 kg

DRUGS (1)
  1. PACLITAXEL [Suspect]
     Active Substance: PACLITAXEL
     Indication: Non-small cell lung cancer metastatic
     Route: 042
     Dates: start: 20250625, end: 20250625

REACTIONS (8)
  - Infusion related reaction [None]
  - Depressed level of consciousness [None]
  - Eye movement disorder [None]
  - Unresponsive to stimuli [None]
  - Seizure like phenomena [None]
  - Agonal respiration [None]
  - Consciousness fluctuating [None]
  - Electrocardiogram abnormal [None]

NARRATIVE: CASE EVENT DATE: 20250625
